FAERS Safety Report 9097074 (Version 1)
Quarter: 2013Q1

REPORT INFORMATION
  Report Type: Spontaneous
  Country: DK (occurrence: None)
  Receive Date: 20130125
  Receipt Date: 20130125
  Transmission Date: 20140127
  Serious: Yes (Life-Threatening, Hospitalization)
  Sender: FDA-Public Use
  Company Number: 2013MA000642

PATIENT
  Age: 72 Year
  Sex: Male

DRUGS (1)
  1. BICALUTAMIDE TABLETS USP [Suspect]
     Indication: PROSTATE CANCER
     Route: 048
     Dates: start: 201110, end: 20120731

REACTIONS (4)
  - Hepatic function abnormal [None]
  - Jaundice [None]
  - Gamma-glutamyltransferase increased [None]
  - Aspartate aminotransferase increased [None]
